FAERS Safety Report 13039931 (Version 1)
Quarter: 2016Q4

REPORT INFORMATION
  Report Type: Spontaneous
  Country: US (occurrence: US)
  Receive Date: 20161219
  Receipt Date: 20161219
  Transmission Date: 20170207
  Serious: No
  Sender: FDA-Public Use
  Company Number: US-BEH-2016076269

PATIENT
  Age: 50 Year
  Sex: Male

DRUGS (1)
  1. PRIVIGEN [Suspect]
     Active Substance: HUMAN IMMUNOGLOBULIN G
     Indication: PRODUCT USED FOR UNKNOWN INDICATION
     Dosage: 40 G, UNK
     Route: 065
     Dates: start: 201609

REACTIONS (1)
  - Flushing [Unknown]

NARRATIVE: CASE EVENT DATE: 201609
